FAERS Safety Report 16623932 (Version 3)
Quarter: 2019Q3

REPORT INFORMATION
  Report Type: Spontaneous
  Country: JP (occurrence: JP)
  Receive Date: 20190724
  Receipt Date: 20190827
  Transmission Date: 20191004
  Serious: Yes (Other)
  Sender: FDA-Public Use
  Company Number: JP-APOTEX-2019AP018924

PATIENT
  Age: 49 Year
  Sex: Female

DRUGS (5)
  1. LORAZEPAM. [Concomitant]
     Active Substance: LORAZEPAM
     Indication: PRODUCT USED FOR UNKNOWN INDICATION
     Dosage: 0.5 MG, UNK
     Route: 048
     Dates: start: 20150917
  2. PAXIL [Suspect]
     Active Substance: PAROXETINE HYDROCHLORIDE
     Indication: ANXIETY DISORDER
     Dosage: 10 MG, QD
     Route: 048
     Dates: start: 20130523
  3. SG                                 /01737201/ [Concomitant]
     Active Substance: ACETAMINOPHEN\APRONALIDE\CAFFEINE\PROPYPHENAZONE
     Indication: PRODUCT USED FOR UNKNOWN INDICATION
     Dosage: 4 G, UNK
     Route: 048
     Dates: start: 20131226
  4. TETRAMIDE [Concomitant]
     Active Substance: MIANSERIN
     Indication: PRODUCT USED FOR UNKNOWN INDICATION
     Dosage: 10 MG, UNK
     Route: 048
     Dates: start: 20160315
  5. MYSLEE [Concomitant]
     Active Substance: ZOLPIDEM TARTRATE
     Indication: PRODUCT USED FOR UNKNOWN INDICATION
     Dosage: 10 MG, UNK
     Route: 048
     Dates: start: 20130619

REACTIONS (3)
  - Brain compression [Recovered/Resolved]
  - Paraesthesia [Recovered/Resolved]
  - Product dose omission [Unknown]

NARRATIVE: CASE EVENT DATE: 201907
